FAERS Safety Report 6874807-5 (Version None)
Quarter: 2010Q3

REPORT INFORMATION
  Report Type: 
  Country: None (occurrence: None)
  Receive Date: 20100723
  Receipt Date: 20081121
  Transmission Date: 20110219
  Serious: Yes (Other)
  Sender: FDA-Public Use
  Company Number: 8039560

PATIENT
  Sex: Male
  Weight: 195 kg

DRUGS (4)
  1. CERTOLIZUMAB PEGOL (CDP870) [Suspect]
     Indication: CROHN'S DISEASE
     Dosage: (400 MG 1X/2 WEEKS, - NR OF DOSES :3 SUBCUTANEOUS) , (400 MG, DOSE FREQ.: ONCE MONTHLY SUBCUTANEOUS)
     Route: 058
     Dates: start: 20041027, end: 20041101
  2. CERTOLIZUMAB PEGOL (CDP870) [Suspect]
     Indication: CROHN'S DISEASE
     Dosage: (400 MG 1X/2 WEEKS, - NR OF DOSES :3 SUBCUTANEOUS) , (400 MG, DOSE FREQ.: ONCE MONTHLY SUBCUTANEOUS)
     Route: 058
     Dates: start: 20041101, end: 20050317
  3. CERTOLIZUMAB PEGOL (CDP870) [Suspect]
     Indication: CROHN'S DISEASE
     Dosage: (400 MG 1X/2 WEEKS, - NR OF DOSES :3 SUBCUTANEOUS) , (400 MG, DOSE FREQ.: ONCE MONTHLY SUBCUTANEOUS)
     Route: 058
     Dates: start: 20050317, end: 20050401
  4. CERTOLIZUMAB PEGOL (CDP870) [Suspect]
     Indication: CROHN'S DISEASE
     Dosage: (400 MG 1X/2 WEEKS, - NR OF DOSES :3 SUBCUTANEOUS) , (400 MG, DOSE FREQ.: ONCE MONTHLY SUBCUTANEOUS)
     Route: 058
     Dates: start: 20050401

REACTIONS (5)
  - ANORECTAL CELLULITIS [None]
  - CONDITION AGGRAVATED [None]
  - CROHN'S DISEASE [None]
  - FISTULA [None]
  - SEPSIS [None]
